FAERS Safety Report 18835065 (Version 3)
Quarter: 2021Q3

REPORT INFORMATION
  Report Type: Spontaneous
  Country: JP (occurrence: JP)
  Receive Date: 20210203
  Receipt Date: 20210721
  Transmission Date: 20211014
  Serious: Yes (Death, Hospitalization, Disabling)
  Sender: FDA-Public Use
  Company Number: NVSJ2021JP001708

PATIENT
  Age: 89 Year
  Sex: Male

DRUGS (3)
  1. AZOSEMIDE [Suspect]
     Active Substance: AZOSEMIDE
     Indication: OEDEMA DUE TO CARDIAC DISEASE
     Dosage: 30 MG
     Route: 048
     Dates: start: 20201110, end: 20201223
  2. ENTRESTO [Suspect]
     Active Substance: SACUBITRIL\VALSARTAN
     Indication: CARDIAC FAILURE CHRONIC
     Dosage: 100 MG, UNKNOWN
     Route: 048
     Dates: start: 20201110, end: 20201118
  3. ENTRESTO [Suspect]
     Active Substance: SACUBITRIL\VALSARTAN
     Dosage: 200 MG, UNKNOWN
     Route: 048
     Dates: start: 20201119, end: 20201223

REACTIONS (5)
  - Gastroenteritis [Recovered/Resolved]
  - Dehydration [Unknown]
  - Cerebral infarction [Recovering/Resolving]
  - Pneumonia aspiration [Fatal]
  - Facial paralysis [Unknown]

NARRATIVE: CASE EVENT DATE: 20201224
